FAERS Safety Report 9419469 (Version 2)
Quarter: 2013Q3

REPORT INFORMATION
  Report Type: Spontaneous
  Country: US (occurrence: US)
  Receive Date: 20130723
  Receipt Date: 20130830
  Transmission Date: 20140515
  Serious: Yes (Death, Hospitalization)
  Sender: FDA-Public Use
  Company Number: US-012298

PATIENT
  Age: 74 Year
  Sex: Male
  Weight: 127.01 kg

DRUGS (9)
  1. PICO-SALAX (NOT SPECIFIED) [Suspect]
     Indication: BOWEL PREPARATION
     Dates: start: 20130613, end: 20130613
  2. GLYBURIDE [Concomitant]
  3. AVAPRO [Concomitant]
  4. POTASSIUM GLUCONATE [Concomitant]
  5. HYDROCHLOROTHIAZIDE [Concomitant]
  6. TOPROL [Concomitant]
  7. CRESTOR [Concomitant]
  8. PRILOSEC [Concomitant]
  9. MULTIVITAMIN N /02208701/ (NOT SPECIFIED) [Concomitant]

REACTIONS (7)
  - Colitis [None]
  - Renal failure [None]
  - Shock [None]
  - Sepsis [None]
  - Jaundice [None]
  - Hepatic cirrhosis [None]
  - Cardiac failure [None]
